FAERS Safety Report 5567986-3 (Version None)
Quarter: 2007Q4

REPORT INFORMATION
  Report Type: 
  Country: None (occurrence: None)
  Receive Date: 20071220
  Receipt Date: 20071210
  Transmission Date: 20080405
  Serious: Yes (Other)
  Sender: FDA-Public Use
  Company Number: ES-JNJFOC-20071202408

PATIENT
  Age: 72 Year
  Sex: Male

DRUGS (3)
  1. TAVANIC [Suspect]
     Indication: RESPIRATORY TRACT INFECTION
     Route: 048
  2. PREDNISONE [Interacting]
     Indication: CHRONIC LYMPHOCYTIC LEUKAEMIA
     Route: 048
  3. MABCAMPATH [Concomitant]
     Indication: CHRONIC LYMPHOCYTIC LEUKAEMIA
     Route: 042

REACTIONS (3)
  - DRUG INTERACTION [None]
  - TENDON RUPTURE [None]
  - TENDONITIS [None]
